FAERS Safety Report 11390492 (Version 1)
Quarter: 2015Q3

REPORT INFORMATION
  Report Type: Spontaneous
  Country: US (occurrence: US)
  Receive Date: 20150818
  Receipt Date: 20150818
  Transmission Date: 20151125
  Serious: No
  Sender: FDA-Public Use
  Company Number: US-ROCHE-1395747

PATIENT
  Sex: Male

DRUGS (4)
  1. PEGASYS [Suspect]
     Active Substance: PEGINTERFERON ALFA-2A
     Indication: CHRONIC HEPATITIS C
     Dosage: STARTED 4 WEEKS AGO
     Route: 058
  2. ATIVAN [Concomitant]
     Active Substance: LORAZEPAM
     Indication: ANXIETY
     Dosage: STARTED A COUPLE OF MONTHS AGO
     Route: 065
  3. COPEGUS [Suspect]
     Active Substance: RIBAVIRIN
     Indication: CHRONIC HEPATITIS C
     Dosage: DIVIDED DOSES, STARTED 4 WEEKS AGO
     Route: 048
  4. ZOLOFT [Concomitant]
     Active Substance: SERTRALINE HYDROCHLORIDE
     Indication: ANXIETY
     Dosage: STARTED 1 WEEK AGO
     Route: 065

REACTIONS (3)
  - Scab [Unknown]
  - Ear pain [Unknown]
  - Ear swelling [Unknown]
